FAERS Safety Report 8480781-0 (Version None)
Quarter: 2012Q2

REPORT INFORMATION
  Report Type: 
  Country: None (occurrence: None)
  Receive Date: 20120626
  Receipt Date: 20120626
  Transmission Date: 20120825
  Serious: Yes (Other)
  Sender: FDA-Public Use
  Company Number: None

PATIENT
  Sex: Female

DRUGS (1)
  1. VITAMIN D [Suspect]
     Dosage: 1 SOFTGEL EVERY WEEK FOR 6WK PO
     Route: 048
     Dates: start: 20120514, end: 20120601

REACTIONS (1)
  - VISUAL IMPAIRMENT [None]
